FAERS Safety Report 4554909-9 (Version None)
Quarter: 2004Q4

REPORT INFORMATION
  Report Type: 
  Country: None (occurrence: None)
  Receive Date: 20041222
  Receipt Date: 20041015
  Transmission Date: 20050328
  Serious: No
  Sender: FDA-Public Use
  Company Number: 209686

PATIENT
  Age: 52 Year
  Sex: Male
  Weight: 102.4 kg

DRUGS (4)
  1. AVASTIN [Suspect]
     Indication: COLON CANCER METASTATIC
     Dosage: 400 MG, Q2W, INTRAVENOUS
     Route: 042
     Dates: start: 20040618
  2. OXALIPLATIN (OXALIPLATIN) [Concomitant]
  3. XELODA [Concomitant]
  4. FLUOROURACIL [Concomitant]

REACTIONS (2)
  - CATHETER RELATED INFECTION [None]
  - WOUND DEHISCENCE [None]
